FAERS Safety Report 21363845 (Version 5)
Quarter: 2023Q4

REPORT INFORMATION
  Report Type: Other
  Country: AU (occurrence: AU)
  Receive Date: 20220922
  Receipt Date: 20231010
  Transmission Date: 20240109
  Serious: Yes (Hospitalization, Other)
  Sender: FDA-Public Use
  Company Number: AU-TOLMAR, INC.-22AU036612

PATIENT
  Age: 76 Year
  Sex: Male

DRUGS (2)
  1. ELIGARD [Suspect]
     Active Substance: LEUPROLIDE ACETATE
     Indication: Prostate cancer
     Dosage: 22.5 MILLIGRAM, Q 3 MONTH
  2. ELIGARD [Suspect]
     Active Substance: LEUPROLIDE ACETATE
     Dosage: 22.5 MILLIGRAM, Q 3 MONTH
     Dates: start: 20220912

REACTIONS (10)
  - Loss of consciousness [Unknown]
  - Transient ischaemic attack [Unknown]
  - Atrial fibrillation [Unknown]
  - Irregular sleep phase [Not Recovered/Not Resolved]
  - Stress [Not Recovered/Not Resolved]
  - Exercise lack of [Not Recovered/Not Resolved]
  - COVID-19 [Unknown]
  - Fall [Recovering/Resolving]
  - Dyspepsia [Not Recovered/Not Resolved]
  - Stress urinary incontinence [Not Recovered/Not Resolved]

NARRATIVE: CASE EVENT DATE: 20221201
